FAERS Safety Report 16331200 (Version 2)
Quarter: 2020Q2

REPORT INFORMATION
  Report Type: Spontaneous
  Country: US (occurrence: US)
  Receive Date: 20190520
  Receipt Date: 20200624
  Transmission Date: 20200713
  Serious: No
  Sender: FDA-Public Use
  Company Number: US-ACADIA PHARMACEUTICALS INC.-ACA-2019-012139

PATIENT
  Age: 44 Year
  Sex: Female

DRUGS (7)
  1. NUPLAZID [Suspect]
     Active Substance: PIMAVANSERIN TARTRATE
     Indication: DELUSION
  2. NUPLAZID [Suspect]
     Active Substance: PIMAVANSERIN TARTRATE
     Indication: SCHIZOAFFECTIVE DISORDER
  3. NUPLAZID [Suspect]
     Active Substance: PIMAVANSERIN TARTRATE
     Indication: HALLUCINATIONS, MIXED
  4. CLOZAPINE. [Concomitant]
     Active Substance: CLOZAPINE
     Indication: DELUSION
  5. NUPLAZID [Suspect]
     Active Substance: PIMAVANSERIN TARTRATE
     Indication: HALLUCINATION
  6. CLOZAPINE. [Concomitant]
     Active Substance: CLOZAPINE
     Indication: HALLUCINATIONS, MIXED
     Dosage: 400 MG, QD
  7. NUPLAZID [Suspect]
     Active Substance: PIMAVANSERIN TARTRATE
     Indication: SCHIZOPHRENIA
     Dosage: 34 MG, QD
     Route: 065

REACTIONS (3)
  - Drug effective for unapproved indication [Unknown]
  - Adverse drug reaction [Unknown]
  - Off label use [Unknown]
